FAERS Safety Report 5012892-6 (Version None)
Quarter: 2006Q2

REPORT INFORMATION
  Report Type: 
  Country: None (occurrence: None)
  Receive Date: 20060530
  Receipt Date: 20060307
  Transmission Date: 20061013
  Serious: Yes (Hospitalization)
  Sender: FDA-Public Use
  Company Number: US-BRISTOL-MYERS SQUIBB COMPANY-13305974

PATIENT
  Age: 69 Year
  Sex: Female

DRUGS (1)
  1. ORENCIA [Suspect]
     Indication: RHEUMATOID ARTHRITIS
     Route: 042
     Dates: start: 20060207

REACTIONS (4)
  - COLITIS ISCHAEMIC [None]
  - GALLBLADDER ENLARGEMENT [None]
  - MYOCARDIAL INFARCTION [None]
  - SEPTIC SHOCK [None]
